FAERS Safety Report 4705699-8 (Version None)
Quarter: 2005Q2

REPORT INFORMATION
  Report Type: 
  Country: None (occurrence: None)
  Receive Date: 20050629
  Receipt Date: 20050617
  Transmission Date: 20051028
  Serious: Yes (Hospitalization, Other)
  Sender: FDA-Public Use
  Company Number: 2005089584

PATIENT
  Age: 83 Year
  Sex: Female

DRUGS (2)
  1. PREDNISONE [Suspect]
     Indication: UVEITIS
  2. ANTI-DIABETICS (ANTI-DIABETICS) [Concomitant]

REACTIONS (18)
  - ABDOMINAL DISTENSION [None]
  - BOWEL SOUNDS ABNORMAL [None]
  - BRONCHOALVEOLAR LAVAGE ABNORMAL [None]
  - CREPITATIONS [None]
  - DIARRHOEA [None]
  - ESCHERICHIA INFECTION [None]
  - FLATULENCE [None]
  - HAEMOPTYSIS [None]
  - HEART RATE INCREASED [None]
  - HYPONATRAEMIA [None]
  - IMMUNOSUPPRESSION [None]
  - KLEBSIELLA INFECTION [None]
  - LUNG INFECTION [None]
  - PLEURAL EFFUSION [None]
  - PYREXIA [None]
  - RESPIRATORY FAILURE [None]
  - RESPIRATORY RATE INCREASED [None]
  - STRONGYLOIDIASIS [None]
